FAERS Safety Report 25526367 (Version 3)
Quarter: 2025Q3

REPORT INFORMATION
  Report Type: Spontaneous
  Country: EU (occurrence: EU)
  Receive Date: 20250707
  Receipt Date: 20250915
  Transmission Date: 20251021
  Serious: Yes (Death)
  Sender: MYLAN
  Company Number: EU-LABORATORIOS LICONSA S.A.-2506SE04804

PATIENT
  Sex: Male

DRUGS (5)
  1. LOPERAMIDE [Suspect]
     Active Substance: LOPERAMIDE
     Indication: Gastrointestinal stoma complication
     Dosage: 8 DOSAGE FORM, QD, 8 LOPERAMIDE TABLETS A DAY
  2. LOPERAMIDE [Suspect]
     Active Substance: LOPERAMIDE
     Dosage: 15 DF, QD, INCREASE THE LOPERAMIDE DOSE FROM 8 TABLETS TO A MAXIMUM OF 15 TABLETS OVER A SHORTER
  3. LOPERAMIDE [Suspect]
     Active Substance: LOPERAMIDE
     Dosage: 8 DF, QD, THE FIRST DOCTOR THEN RENEWED LOPERAMIDE WITH THE SAME DOSAGE AS BEFORE, I.E. 8 TABLETS QD
  4. LOPERAMIDE [Suspect]
     Active Substance: LOPERAMIDE
     Dosage: 15 DF, QD, THE SECOND DOCTOR RENEWED THE PRESCRIPTION FOR LOPERAMIDE WITH THE SAME DOSAGE AS BEFORE
  5. LOPERAMIDE [Suspect]
     Active Substance: LOPERAMIDE
     Dosage: 10 DF, QD, THE SECOND DOCTOR STATES THAT THE PATIENT HAD NOT EXCEEDED THE DOSAGE OF 15 TABLETS QD

REACTIONS (3)
  - Toxicity to various agents [Fatal]
  - Product prescribing error [Fatal]
  - Prescribed overdose [Fatal]
